FAERS Safety Report 17889857 (Version 1)
Quarter: 2020Q2

REPORT INFORMATION
  Report Type: Spontaneous
  Country: CL (occurrence: CL)
  Receive Date: 20200612
  Receipt Date: 20200612
  Transmission Date: 20200714
  Serious: Yes (Hospitalization, Other)
  Sender: FDA-Public Use
  Company Number: CL-PFIZER INC-2020223213

PATIENT
  Age: 34 Year
  Sex: Female

DRUGS (1)
  1. IBUPROFEN. [Suspect]
     Active Substance: IBUPROFEN
     Indication: NASOPHARYNGITIS
     Dosage: UNK

REACTIONS (2)
  - Dermatitis bullous [Recovered/Resolved with Sequelae]
  - Fixed eruption [Recovered/Resolved with Sequelae]
